FAERS Safety Report 9353117 (Version 2)
Quarter: 2013Q3

REPORT INFORMATION
  Report Type: Spontaneous
  Country: JP (occurrence: JP)
  Receive Date: 20130618
  Receipt Date: 20130702
  Transmission Date: 20140515
  Serious: Yes (Other)
  Sender: FDA-Public Use
  Company Number: JP-MYLANLABS-2013S1012550

PATIENT
  Age: 30 Year
  Sex: Male
  Weight: 65 kg

DRUGS (5)
  1. REMIFENTANIL [Suspect]
     Indication: ANAESTHESIA
     Dosage: 0.05-0.3 MCG/KG
     Route: 042
  2. PROPOFOL [Concomitant]
     Indication: ANAESTHESIA
  3. FENTANYL [Concomitant]
     Indication: ANAESTHESIA
  4. ROCURONIUM [Concomitant]
     Indication: ANAESTHESIA
  5. SEVOFLURANE [Concomitant]
     Indication: MAINTENANCE OF ANAESTHESIA
     Dosage: IN OXYGEN

REACTIONS (4)
  - Delayed recovery from anaesthesia [Recovered/Resolved]
  - Loss of consciousness [Recovered/Resolved]
  - Infusion site extravasation [Recovered/Resolved]
  - Respiratory depression [Recovered/Resolved]
